FAERS Safety Report 4886550-2 (Version None)
Quarter: 2006Q1

REPORT INFORMATION
  Report Type: 
  Country: None (occurrence: None)
  Receive Date: 20060120
  Receipt Date: 20050523
  Transmission Date: 20060701
  Serious: Yes (Hospitalization)
  Sender: FDA-Public Use
  Company Number: US-NOVOPROD-244348

PATIENT
  Age: 65 Year
  Sex: Female
  Weight: 105 kg

DRUGS (4)
  1. INSULIN DETEMIR FLEXPEN [Suspect]
     Indication: INSULIN-REQUIRING TYPE II DIABETES MELLITUS
     Dosage: 136 IU, QD
     Route: 058
     Dates: start: 20050428
  2. NOVOLOG [Suspect]
     Dosage: 80 IU, QD
     Route: 058
     Dates: start: 20050428
  3. ASPIRIN [Concomitant]
     Dosage: 325 MG, QD
     Route: 048
     Dates: start: 19850101
  4. MULTIVITAMIN [Concomitant]
     Dosage: 1 TAB, QD
     Route: 048
     Dates: start: 19410101

REACTIONS (1)
  - INJECTION SITE ABSCESS [None]
